FAERS Safety Report 9165156 (Version 1)
Quarter: 2013Q1

REPORT INFORMATION
  Report Type: Spontaneous
  Country: AU (occurrence: None)
  Receive Date: 20130227
  Receipt Date: 20130227
  Transmission Date: 20140127
  Serious: Yes (Life-Threatening, Hospitalization)
  Sender: FDA-Public Use
  Company Number: SPIR20130004

PATIENT
  Age: 65 Year
  Sex: Male

DRUGS (3)
  1. SPIRONOLACTONE [Suspect]
     Route: 048
  2. METFORMIN HYDROCHLORIDE [Suspect]
     Route: 048
  3. TRANDOLAPRIL [Suspect]

REACTIONS (10)
  - Lactic acidosis [None]
  - Hyperkalaemia [None]
  - Cardio-respiratory arrest [None]
  - Atrioventricular block complete [None]
  - Hypoglycaemia [None]
  - Anaemia [None]
  - International normalised ratio increased [None]
  - Activated partial thromboplastin time prolonged [None]
  - Renal failure acute [None]
  - Continuous haemodiafiltration [None]
